FAERS Safety Report 9260988 (Version 1)
Quarter: 2013Q2

REPORT INFORMATION
  Report Type: Spontaneous
  Country: US (occurrence: US)
  Receive Date: 20130429
  Receipt Date: 20130429
  Transmission Date: 20140414
  Serious: No
  Sender: FDA-Public Use
  Company Number: US-AMGEN-USASP2012021441

PATIENT
  Age: 47 Year
  Sex: Female
  Weight: 49 kg

DRUGS (15)
  1. SENSIPAR [Suspect]
     Indication: RENAL FAILURE CHRONIC
     Dosage: 30 MG, QD
  2. MAG OXIDE [Concomitant]
     Indication: SUPPLEMENTATION THERAPY
     Dosage: 400 MG, QD
     Dates: start: 20111017
  3. PROCARDIA [Concomitant]
     Indication: HYPERTENSION
     Dosage: 60 MG, BID
     Dates: start: 20110930
  4. HYDROCHLOROTHIAZIDE [Concomitant]
     Indication: HYPERTENSION
     Dosage: 12.5 MG, QD
     Dates: start: 20110930
  5. PHENERGAN [Concomitant]
     Dosage: UNK
     Dates: start: 20110721
  6. ADVIL [Concomitant]
     Indication: PAIN
     Dosage: UNK
     Dates: start: 20111203, end: 20120131
  7. EMLA [Concomitant]
     Dosage: UNK
     Dates: start: 20110526
  8. PROTONIX [Concomitant]
     Dosage: 40 MG, BID
     Dates: start: 20110513
  9. COREG [Concomitant]
     Indication: HYPERTENSION
     Dosage: 12.5 MG, BID
     Dates: start: 20110414
  10. PROGRAF [Concomitant]
     Dosage: 1 MG, BID
     Dates: start: 20110117
  11. OXYCODONE [Concomitant]
     Dosage: 5 MG, PRN
     Dates: start: 20101207
  12. NEPHROCAPS [Concomitant]
     Dosage: UNK
     Dates: start: 20100820
  13. BIOTIN [Concomitant]
     Dosage: 500 MG, QD
     Dates: start: 20100820
  14. FLEXERIL [Concomitant]
     Indication: HEADACHE
     Dosage: 10 MG, BID
  15. TYLENOL [Concomitant]
     Indication: HEADACHE
     Dosage: 500 MG, PRN
     Dates: start: 20090117

REACTIONS (1)
  - Myoclonus [Recovered/Resolved]
